FAERS Safety Report 5964564-9 (Version None)
Quarter: 2008Q4

REPORT INFORMATION
  Report Type: 
  Country: None (occurrence: None)
  Receive Date: 20081125
  Receipt Date: 20081117
  Transmission Date: 20090506
  Serious: Yes (Hospitalization)
  Sender: FDA-Public Use
  Company Number: DE-JNJFOC-20081103580

PATIENT
  Age: 86 Year
  Sex: Male

DRUGS (5)
  1. RISPERDAL [Suspect]
     Indication: DRUG USE FOR UNKNOWN INDICATION
     Route: 048
  2. DIAZEPAM [Interacting]
     Indication: SEDATION
     Route: 048
  3. CORANGIN [Concomitant]
     Route: 048
  4. PROSKAR [Concomitant]
     Route: 048
  5. MANINIL [Concomitant]
     Route: 048

REACTIONS (2)
  - DRUG INTERACTION [None]
  - SEDATION [None]
